FAERS Safety Report 14248626 (Version 1)
Quarter: 2017Q4

REPORT INFORMATION
  Report Type: Spontaneous
  Country: DE (occurrence: DE)
  Receive Date: 20171204
  Receipt Date: 20171204
  Transmission Date: 20180321
  Serious: Yes (Hospitalization, Other)
  Sender: FDA-Public Use
  Company Number: PHHY2017DE174359

PATIENT
  Sex: Female

DRUGS (3)
  1. NILOTINIB [Suspect]
     Active Substance: NILOTINIB
     Dosage: UNK
     Route: 065
     Dates: start: 201502, end: 201610
  2. NILOTINIB [Suspect]
     Active Substance: NILOTINIB
     Indication: CHRONIC MYELOID LEUKAEMIA
     Dosage: 300 MG, BID
     Route: 065
     Dates: start: 201310, end: 201411
  3. DASATINIB. [Suspect]
     Active Substance: DASATINIB
     Indication: PRODUCT USED FOR UNKNOWN INDICATION
     Dosage: 100 MG, QD
     Route: 065

REACTIONS (18)
  - Stenosis [Unknown]
  - Degenerative aortic valve disease [Unknown]
  - Gamma-glutamyltransferase increased [Unknown]
  - Hypertension [Unknown]
  - Alopecia [Unknown]
  - Fatigue [Unknown]
  - Dyspnoea exertional [Unknown]
  - Restless legs syndrome [Unknown]
  - Chest pain [Unknown]
  - Hypoaesthesia [Unknown]
  - Pain in extremity [Unknown]
  - Performance status decreased [Unknown]
  - Peripheral arterial occlusive disease [Unknown]
  - Diastolic dysfunction [Unknown]
  - Arthralgia [Unknown]
  - Blood uric acid increased [Unknown]
  - Intermittent claudication [Unknown]
  - Hypertensive heart disease [Unknown]

NARRATIVE: CASE EVENT DATE: 201402
